FAERS Safety Report 21951385 (Version 5)
Quarter: 2023Q2

REPORT INFORMATION
  Report Type: Spontaneous
  Country: US (occurrence: US)
  Receive Date: 20230203
  Receipt Date: 20230505
  Transmission Date: 20230722
  Serious: No
  Sender: FDA-Public Use
  Company Number: US-SA-SAC20230202000454

PATIENT
  Age: 63 Year
  Sex: Female
  Weight: 58.9 kg

DRUGS (32)
  1. DUPIXENT [Suspect]
     Active Substance: DUPILUMAB
     Indication: Dermatitis atopic
     Dosage: 300 MG, QOW
     Route: 058
     Dates: start: 20221026
  2. DUPIXENT [Suspect]
     Active Substance: DUPILUMAB
     Indication: Dermatitis allergic
  3. ESTRADIOL [Concomitant]
     Active Substance: ESTRADIOL
     Dosage: UNK UNK, BIW
  4. FIBER [Concomitant]
  5. VITAMIN D3 [Concomitant]
     Active Substance: CHOLECALCIFEROL
  6. .ALPHA.-TOCOPHEROL [Concomitant]
     Active Substance: .ALPHA.-TOCOPHEROL
  7. TRIAMCINOLONE ACETONIDE [Concomitant]
     Active Substance: TRIAMCINOLONE ACETONIDE
  8. TRIAMCINOLONE ACETONIDE [Concomitant]
     Active Substance: TRIAMCINOLONE ACETONIDE
  9. LINZESS [Concomitant]
     Active Substance: LINACLOTIDE
  10. KETOCONAZOLE [Concomitant]
     Active Substance: KETOCONAZOLE
  11. HYDROCORTISONE [Concomitant]
     Active Substance: HYDROCORTISONE
  12. TRAMADOL HCL [Concomitant]
     Active Substance: TRAMADOL HYDROCHLORIDE
  13. CYCLOBENZAPRINE HYDROCHLORIDE [Concomitant]
     Active Substance: CYCLOBENZAPRINE HYDROCHLORIDE
  14. PRIMIDONE [Concomitant]
     Active Substance: PRIMIDONE
  15. CITALOPRAM [Concomitant]
     Active Substance: CITALOPRAM HYDROBROMIDE
  16. VIMPAT [Concomitant]
     Active Substance: LACOSAMIDE
  17. SPIRONOLACTONE [Concomitant]
     Active Substance: SPIRONOLACTONE
  18. LOSARTAN POTASSIUM [Concomitant]
     Active Substance: LOSARTAN POTASSIUM
  19. PREDNISOLONE [Concomitant]
     Active Substance: PREDNISOLONE
  20. NITROFURANTOIN [Concomitant]
     Active Substance: NITROFURANTOIN
  21. OMEPRAZOLE [Concomitant]
     Active Substance: OMEPRAZOLE
  22. SYNTHROID [Concomitant]
     Active Substance: LEVOTHYROXINE SODIUM
  23. ELIDEL [Concomitant]
     Active Substance: PIMECROLIMUS
  24. MAGNESIUM [Concomitant]
     Active Substance: MAGNESIUM
  25. IBUPROFEN [Concomitant]
     Active Substance: IBUPROFEN
  26. TIZANIDINE HYDROCHLORIDE [Concomitant]
     Active Substance: TIZANIDINE HYDROCHLORIDE
  27. CITALOPRAM HYDROBROMIDE [Concomitant]
     Active Substance: CITALOPRAM HYDROBROMIDE
  28. EPIPEN [Concomitant]
     Active Substance: EPINEPHRINE
  29. BETAHISTINE HCL [Concomitant]
  30. HISTAMINE DIHYDROCHLORIDE [Concomitant]
     Active Substance: HISTAMINE DIHYDROCHLORIDE
  31. NEPAFENAC;PREDNISOLONE [Concomitant]
  32. ESTRADIOL [Concomitant]
     Active Substance: ESTRADIOL

REACTIONS (5)
  - Dermatitis atopic [Not Recovered/Not Resolved]
  - Rash [Not Recovered/Not Resolved]
  - Incorrect dose administered by device [Unknown]
  - Injection site pruritus [Recovered/Resolved]
  - Accidental exposure to product [Unknown]

NARRATIVE: CASE EVENT DATE: 20230130
